FAERS Safety Report 4498908-4 (Version None)
Quarter: 2004Q4

REPORT INFORMATION
  Report Type: 
  Country: None (occurrence: None)
  Receive Date: 20041110
  Receipt Date: 20041110
  Transmission Date: 20050328
  Serious: Yes (Other)
  Sender: FDA-Public Use
  Company Number: None

PATIENT
  Age: 25 Year
  Sex: Male

DRUGS (4)
  1. GEODON [Suspect]
     Indication: CONVULSION
     Dosage: 40 MG -} 60 MG Q HS ORAL
     Route: 048
     Dates: start: 20040923, end: 20041019
  2. GEODON [Suspect]
     Indication: SCHIZOPHRENIA
     Dosage: 40 MG -} 60 MG Q HS ORAL
     Route: 048
     Dates: start: 20040923, end: 20041019
  3. KLONOPIN [Concomitant]
  4. RISPERDAL [Concomitant]

REACTIONS (3)
  - CONDITION AGGRAVATED [None]
  - GRAND MAL CONVULSION [None]
  - MOVEMENT DISORDER [None]
